FAERS Safety Report 25366406 (Version 3)
Quarter: 2025Q3

REPORT INFORMATION
  Report Type: Spontaneous
  Country: US (occurrence: US)
  Receive Date: 20250528
  Receipt Date: 20250901
  Transmission Date: 20251021
  Serious: Yes (Other)
  Sender: CSL BEHRING
  Company Number: US-BEH-2025207211

PATIENT
  Sex: Male

DRUGS (1)
  1. HIZENTRA [Suspect]
     Active Substance: HUMAN IMMUNOGLOBULIN G
     Dosage: 0.4 G/KG, QW
     Route: 065

REACTIONS (3)
  - Drug ineffective [Unknown]
  - Musculoskeletal stiffness [Unknown]
  - Paraesthesia [Unknown]
